FAERS Safety Report 19043035 (Version 1)
Quarter: 2021Q1

REPORT INFORMATION
  Report Type: Spontaneous
  Country: US (occurrence: US)
  Receive Date: 20210323
  Receipt Date: 20210323
  Transmission Date: 20210420
  Serious: Yes (Other)
  Sender: FDA-Public Use
  Company Number: US-PFIZER INC-2021233817

PATIENT
  Age: 59 Year
  Sex: Female

DRUGS (1)
  1. INLYTA [Suspect]
     Active Substance: AXITINIB
     Indication: RENAL CANCER
     Dosage: 5 MG, 2X/DAY (1 TABLET EVERY 12 HOURS)
     Route: 048

REACTIONS (6)
  - Arthritis infective [Unknown]
  - Pain [Unknown]
  - Decreased appetite [Unknown]
  - Skin exfoliation [Unknown]
  - Swelling [Unknown]
  - Dysphagia [Unknown]
